FAERS Safety Report 10211345 (Version 2)
Quarter: 2014Q3

REPORT INFORMATION
  Report Type: Spontaneous
  Country: IT (occurrence: IT)
  Receive Date: 20140602
  Receipt Date: 20140729
  Transmission Date: 20150326
  Serious: Yes (Other)
  Sender: FDA-Public Use
  Company Number: IT-GLAXOSMITHKLINE-B0998606A

PATIENT
  Age: 86 Year
  Sex: Male
  Weight: 67 kg

DRUGS (16)
  1. ATORVASTATIN [Concomitant]
     Active Substance: ATORVASTATIN
     Indication: HYPERCHOLESTEROLAEMIA
     Dosage: 20MG PER DAY
     Route: 048
     Dates: start: 20030201, end: 20140411
  2. FOLIC ACID. [Concomitant]
     Active Substance: FOLIC ACID
     Dates: start: 20130212, end: 20140411
  3. ASCRIPTIN [Concomitant]
     Active Substance: ASPIRIN
     Indication: HYPERTENSION
     Route: 048
     Dates: start: 20130101, end: 20140411
  4. VELCADE [Suspect]
     Active Substance: BORTEZOMIB
     Indication: PLASMA CELL MYELOMA
     Dosage: 3.5MG WEEKLY
     Route: 058
     Dates: start: 20130212, end: 20130507
  5. REVLIMID [Suspect]
     Active Substance: LENALIDOMIDE
     Indication: PLASMA CELL MYELOMA
     Dosage: 10MG UNKNOWN
     Route: 048
     Dates: start: 20130715, end: 20140404
  6. ALKERAN [Suspect]
     Active Substance: MELPHALAN
     Indication: PLASMA CELL MYELOMA
     Dosage: 2MG CYCLIC
     Route: 048
     Dates: start: 20110829, end: 20120331
  7. LEVOXACIN [Concomitant]
     Active Substance: LEVOFLOXACIN
     Indication: COUGH
     Route: 048
     Dates: start: 20140410, end: 20140411
  8. DIBASE [Concomitant]
     Active Substance: CHOLECALCIFEROL
     Indication: HYPOVITAMINOSIS
     Route: 048
     Dates: start: 20130212, end: 20140411
  9. FINASTERIDE. [Concomitant]
     Active Substance: FINASTERIDE
     Indication: BENIGN PROSTATIC HYPERPLASIA
     Dosage: 5MG PER DAY
     Route: 048
     Dates: start: 20030201, end: 20140411
  10. BISOPROLOL HEMIFUMARATE [Concomitant]
     Active Substance: BISOPROLOL
     Indication: HYPERTENSION
     Dosage: 5MG PER DAY
     Route: 048
     Dates: start: 20030101, end: 20140411
  11. CALCIUM [Concomitant]
     Active Substance: CALCIUM
     Indication: HYPOCALCAEMIA
     Dates: start: 20130918, end: 20140411
  12. FENTANYL. [Concomitant]
     Active Substance: FENTANYL
     Indication: PAIN
     Dosage: 50MCG TWICE PER DAY
     Route: 062
     Dates: start: 20110829, end: 20140411
  13. NITRODERM [Concomitant]
     Active Substance: NITROGLYCERIN
     Dosage: 10MG PER DAY
     Route: 062
     Dates: start: 20130201, end: 20140411
  14. OMEPRAZOLE. [Concomitant]
     Active Substance: OMEPRAZOLE
     Dosage: 40MG PER DAY
     Route: 048
     Dates: start: 20130212, end: 20140411
  15. RAMIPRIL. [Concomitant]
     Active Substance: RAMIPRIL
     Indication: HYPERTENSION
     Route: 048
     Dates: start: 20130101, end: 20140411
  16. DEXAMETHASONE SODIUM PHOSPHATE [Concomitant]
     Active Substance: DEXAMETHASONE SODIUM PHOSPHATE
     Indication: PLASMA CELL MYELOMA
     Dosage: 4MG PER DAY
     Route: 048
     Dates: start: 20130715, end: 20140411

REACTIONS (2)
  - Metastases to skin [Not Recovered/Not Resolved]
  - Neoplasm malignant [Not Recovered/Not Resolved]

NARRATIVE: CASE EVENT DATE: 20140411
